FAERS Safety Report 14680694 (Version 1)
Quarter: 2018Q1

REPORT INFORMATION
  Report Type: Spontaneous
  Country: US (occurrence: US)
  Receive Date: 20180326
  Receipt Date: 20180326
  Transmission Date: 20180509
  Serious: No
  Sender: FDA-Public Use
  Company Number: US-TEVA-2018-US-873635

PATIENT
  Age: 77 Year
  Sex: Female
  Weight: 57 kg

DRUGS (7)
  1. LEVOTHYROXINE. [Concomitant]
     Active Substance: LEVOTHYROXINE
     Indication: THYROID DISORDER
     Route: 065
  2. CALCIUM [Concomitant]
     Active Substance: CALCIUM
     Route: 065
  3. PROAIR HFA [Suspect]
     Active Substance: ALBUTEROL SULFATE
     Indication: DYSPNOEA
     Dosage: TWO PUFFS BY MOUTH EVERY FOUR HOURS AS NEEDED
     Route: 065
     Dates: start: 201411
  4. ZOLPIDEM [Concomitant]
     Active Substance: ZOLPIDEM\ZOLPIDEM TARTRATE
     Indication: SLEEP DISORDER
     Route: 065
  5. LOVASTATIN. [Concomitant]
     Active Substance: LOVASTATIN
     Route: 065
  6. BABY ASPIRIN [Concomitant]
     Active Substance: ASPIRIN
     Route: 065
  7. OMEGA 3 FATTY ACID [Concomitant]
     Active Substance: OMEGA-3 FATTY ACIDS
     Route: 065

REACTIONS (3)
  - Cough [Not Recovered/Not Resolved]
  - Expired product administered [Unknown]
  - Nasal discharge discolouration [Not Recovered/Not Resolved]

NARRATIVE: CASE EVENT DATE: 201803
